FAERS Safety Report 4447911-9 (Version None)
Quarter: 2004Q3

REPORT INFORMATION
  Report Type: 
  Country: None (occurrence: None)
  Receive Date: 20040913
  Receipt Date: 20040902
  Transmission Date: 20050211
  Serious: Yes (Hospitalization)
  Sender: FDA-Public Use
  Company Number: PHRM2004FR02702

PATIENT
  Age: 52 Year
  Sex: Male
  Weight: 104 kg

DRUGS (7)
  1. TRILEPTAL [Suspect]
     Dosage: 150 MG, BID
     Route: 048
     Dates: end: 20040813
  2. LEVOTHYROXINE SODIUM [Concomitant]
     Dosage: 250 UG, QD
     Route: 048
  3. PARLODEL [Concomitant]
     Dosage: 2.5 MG, QD
     Route: 048
  4. PANTESTON [Concomitant]
     Dosage: 2 DF, TID
     Route: 048
  5. GLUCOPHAGE ^UNS^ [Concomitant]
     Indication: DIABETES MELLITUS
     Dosage: 850 MG, TID
     Route: 048
  6. LANTUS [Concomitant]
  7. HYDROCORTISONE [Concomitant]

REACTIONS (11)
  - BALANCE DISORDER [None]
  - CEREBELLAR SYNDROME [None]
  - COGNITIVE DISORDER [None]
  - DEPRESSED MOOD [None]
  - EYE PAIN [None]
  - FALL [None]
  - GAIT DISTURBANCE [None]
  - HYPONATRAEMIA [None]
  - MEMORY IMPAIRMENT [None]
  - REFLEXES ABNORMAL [None]
  - WEIGHT DECREASED [None]
